FAERS Safety Report 7673047-X (Version None)
Quarter: 2011Q3

REPORT INFORMATION
  Report Type: 
  Country: None (occurrence: None)
  Receive Date: 20110809
  Receipt Date: 20110802
  Transmission Date: 20111222
  Serious: Yes (Other)
  Sender: FDA-Public Use
  Company Number: US-RB-023220-11

PATIENT
  Sex: Female

DRUGS (5)
  1. SUBUTEX [Suspect]
     Dosage: TAKING MORE THAN PRESCRIBED
     Route: 060
     Dates: start: 20110101
  2. SUBOXONE [Suspect]
     Indication: DRUG DEPENDENCE
     Dosage: SUBLINGUAL FILM
     Route: 060
     Dates: start: 20110203, end: 20110228
  3. SUBUTEX [Suspect]
     Indication: DRUG DEPENDENCE
     Route: 060
     Dates: start: 20110301
  4. PERCOCET [Suspect]
     Indication: PAIN
     Dosage: DOSING INFORMATION UNKNOWN
     Route: 065
     Dates: start: 20110216
  5. COCAINE [Suspect]
     Indication: PRODUCT USED FOR UNKNOWN INDICATION
     Dosage: DOSING INFORMATION UNKNOWN
     Route: 065
     Dates: start: 20110101

REACTIONS (8)
  - SMALL FOR DATES BABY [None]
  - MATERNAL EXPOSURE DURING PREGNANCY [None]
  - OFF LABEL USE [None]
  - AMNIOTIC FLUID VOLUME DECREASED [None]
  - PREMATURE DELIVERY [None]
  - INTENTIONAL OVERDOSE [None]
  - TOOTH ABSCESS [None]
  - DRUG ABUSE [None]
